FAERS Safety Report 14984213 (Version 3)
Quarter: 2019Q1

REPORT INFORMATION
  Report Type: Report from Study
  Country: FR (occurrence: FR)
  Receive Date: 20180607
  Receipt Date: 20190125
  Transmission Date: 20190417
  Serious: Yes (Death, Hospitalization, Other)
  Sender: FDA-Public Use
  Company Number: FR-JAZZ-2017-FR-015306

PATIENT

DRUGS (1)
  1. DEFITELIO [Suspect]
     Active Substance: DEFIBROTIDE SODIUM
     Indication: VENOOCCLUSIVE DISEASE
     Dosage: UNK
     Route: 042
     Dates: start: 20151210, end: 20160106

REACTIONS (10)
  - Fungaemia [Fatal]
  - Aplasia [Fatal]
  - Acute graft versus host disease [Unknown]
  - Platelet disorder [Unknown]
  - Septic shock [Fatal]
  - Graft versus host disease in skin [Fatal]
  - Abscess jaw [Fatal]
  - Oral herpes [Fatal]
  - Multiple organ dysfunction syndrome [Fatal]
  - Pneumonia pseudomonal [Fatal]

NARRATIVE: CASE EVENT DATE: 20151211
